FAERS Safety Report 24795488 (Version 1)
Quarter: 2024Q4

REPORT INFORMATION
  Report Type: Spontaneous
  Country: US (occurrence: None)
  Receive Date: 20241231
  Receipt Date: 20241231
  Transmission Date: 20250115
  Serious: Yes (Other)
  Sender: Public
  Company Number: None

PATIENT
  Age: 70 Year
  Sex: Female
  Weight: 60.75 kg

DRUGS (1)
  1. XEMBIFY [Suspect]
     Active Substance: HUMAN IMMUNOGLOBULIN G
     Indication: Blood immunoglobulin G decreased
     Dosage: 6 G GRAM(S) QW SUBCUTANEOUS ?
     Route: 058

REACTIONS (3)
  - Pruritus [None]
  - Infusion site rash [None]
  - Infusion site erythema [None]

NARRATIVE: CASE EVENT DATE: 20241228
